FAERS Safety Report 9429300 (Version 2)
Quarter: 2014Q1

REPORT INFORMATION
  Report Type: Spontaneous
  Country: US (occurrence: US)
  Receive Date: 20130730
  Receipt Date: 20140109
  Transmission Date: 20141002
  Serious: Yes (Other)
  Sender: FDA-Public Use
  Company Number: US-PFIZER INC-2013218633

PATIENT
  Age: 86 Year
  Sex: Female
  Weight: 52.15 kg

DRUGS (8)
  1. PREMARIN [Suspect]
     Indication: POSTOPERATIVE CARE
     Dosage: 0.625 MG, 1X/DAY
     Route: 048
  2. PROPRANOLOL [Concomitant]
     Dosage: 80 MG, 2X/DAY
  3. LASIX [Concomitant]
     Dosage: 30 MG, 1X/DAY
  4. CRESTOR [Concomitant]
     Dosage: 5 MG, 1X/DAY
  5. CLOPIDOGREL [Concomitant]
     Dosage: 75 MG, ALTERNATE DAY
  6. LOSARTAN [Concomitant]
     Dosage: 25 MG, 1X/DAY
  7. EPLERENONE [Concomitant]
     Dosage: 25 MG, 1X/DAY
  8. ASPIRIN [Concomitant]
     Dosage: 81 MG, 1X/DAY

REACTIONS (3)
  - Cardiac failure [Unknown]
  - Aortic valve disease [Unknown]
  - Cardiac disorder [Unknown]
